FAERS Safety Report 14368691 (Version 2)
Quarter: 2018Q3

REPORT INFORMATION
  Report Type: Spontaneous
  Country: US (occurrence: US)
  Receive Date: 20180109
  Receipt Date: 20180801
  Transmission Date: 20181010
  Serious: No
  Sender: FDA-Public Use
  Company Number: US-PFIZER INC-2017520346

PATIENT
  Age: 72 Year
  Sex: Female

DRUGS (2)
  1. LYRICA [Suspect]
     Active Substance: PREGABALIN
     Indication: SPINAL CORD INJURY
     Dosage: UNK
     Dates: start: 20180207, end: 20180213
  2. LYRICA [Suspect]
     Active Substance: PREGABALIN
     Indication: NEURALGIA
     Dosage: UNK

REACTIONS (5)
  - Speech disorder [Unknown]
  - Disturbance in attention [Unknown]
  - Cognitive disorder [Unknown]
  - Pain [Not Recovered/Not Resolved]
  - Memory impairment [Unknown]
